FAERS Safety Report 4860626-8 (Version None)
Quarter: 2005Q4

REPORT INFORMATION
  Report Type: 
  Country: None (occurrence: None)
  Receive Date: 20051216
  Receipt Date: 20051128
  Transmission Date: 20060501
  Serious: Yes (Hospitalization)
  Sender: FDA-Public Use
  Company Number: 200513961BCC

PATIENT
  Age: 58 Year
  Sex: Female
  Weight: 72.5755 kg

DRUGS (2)
  1. ALEVE COLD AND SINUS [Suspect]
     Indication: INFLUENZA
     Dosage: 220 MG, QD, ORAL
     Route: 048
     Dates: start: 20050913, end: 20050916
  2. ALEVE COLD AND SINUS [Suspect]
     Indication: SINUS CONGESTION
     Dosage: 220 MG, QD, ORAL
     Route: 048
     Dates: start: 20050913, end: 20050916

REACTIONS (13)
  - ANAEMIA [None]
  - BLOOD CALCIUM DECREASED [None]
  - BLOOD UREA INCREASED [None]
  - DEHYDRATION [None]
  - DIARRHOEA [None]
  - GASTROINTESTINAL HAEMORRHAGE [None]
  - HEART RATE INCREASED [None]
  - NECK PAIN [None]
  - PROTEIN TOTAL DECREASED [None]
  - SYNCOPE [None]
  - URINE KETONE BODY PRESENT [None]
  - VOMITING [None]
  - WHITE BLOOD CELL COUNT INCREASED [None]
